FAERS Safety Report 12391518 (Version 1)
Quarter: 2016Q2

REPORT INFORMATION
  Report Type: Spontaneous
  Country: NL (occurrence: NL)
  Receive Date: 20160521
  Receipt Date: 20160521
  Transmission Date: 20160815
  Serious: Yes (Hospitalization)
  Sender: FDA-Public Use
  Company Number: NL-ACCORD-039440

PATIENT
  Age: 45 Year
  Sex: Female

DRUGS (8)
  1. BISACODYL. [Concomitant]
     Active Substance: BISACODYL
     Indication: WEIGHT DECREASED
  2. IRBESARTAN. [Concomitant]
     Active Substance: IRBESARTAN
  3. PROMETHAZINE [Suspect]
     Active Substance: PROMETHAZINE\PROMETHAZINE HYDROCHLORIDE
     Dosage: STRENGTH : 25 MG
  4. VENLAFAXINE/VENLAFAXINE HYDROCHLORIDE [Concomitant]
     Active Substance: VENLAFAXINE HYDROCHLORIDE
  5. CAFFEINE/PARACETAMOL [Concomitant]
     Dosage: 500/50 MG, APPROXIMATELY?TEN TABLETS
  6. XYLOMETAZOLINE/XYLOMETAZOLINE HYDROCHLORIDE [Concomitant]
     Dosage: 1 MG/ML, ACQUIRED OVER THE COUNTER
  7. TRAMADOL/TRAMADOL HYDROCHLORIDE [Suspect]
     Active Substance: TRAMADOL HYDROCHLORIDE
     Dosage: STRENGTH : 50 MG
  8. OMEPRAZOLE. [Concomitant]
     Active Substance: OMEPRAZOLE

REACTIONS (4)
  - Anticholinergic syndrome [Recovered/Resolved]
  - Intentional overdose [Unknown]
  - Suicide attempt [Unknown]
  - Prescription drug used without a prescription [Unknown]

NARRATIVE: CASE EVENT DATE: 20141031
